FAERS Safety Report 18837952 (Version 1)
Quarter: 2021Q1

REPORT INFORMATION
  Report Type: Spontaneous
  Country: US (occurrence: US)
  Receive Date: 20210203
  Receipt Date: 20210203
  Transmission Date: 20210419
  Serious: No
  Sender: FDA-Public Use
  Company Number: US-GLAXOSMITHKLINE-US2021021175

PATIENT
  Sex: Male

DRUGS (1)
  1. FLOVENT HFA [Suspect]
     Active Substance: FLUTICASONE PROPIONATE
     Indication: RESPIRATORY TRACT IRRITATION
     Dosage: 1 PUFF(S), BID (110 MCG)
     Route: 055

REACTIONS (3)
  - Product use in unapproved indication [Unknown]
  - Product label confusion [Unknown]
  - Underdose [Unknown]
